FAERS Safety Report 10746118 (Version 5)
Quarter: 2018Q2

REPORT INFORMATION
  Report Type: Report from Study
  Country: JP (occurrence: JP)
  Receive Date: 20150128
  Receipt Date: 20180612
  Transmission Date: 20180711
  Serious: Yes (Death, Hospitalization, Other)
  Sender: FDA-Public Use
  Company Number: JP-INCYTE CORPORATION-2015IN000163

PATIENT

DRUGS (5)
  1. BACTRAMIN [Concomitant]
     Active Substance: SULFAMETHOXAZOLE\TRIMETHOPRIM
     Indication: PRODUCT USED FOR UNKNOWN INDICATION
     Dosage: 1 DF, UNK
     Route: 048
     Dates: end: 20150108
  2. PRIMOBOLAN-DEPOT [Concomitant]
     Active Substance: METHENOLONE ENANTHATE
     Indication: MYELOFIBROSIS
     Dosage: 15 MG, UNK
     Route: 048
     Dates: end: 20150108
  3. JAKAVI [Suspect]
     Active Substance: RUXOLITINIB
     Indication: PRIMARY MYELOFIBROSIS
     Dosage: 15 MG, BID
     Route: 048
     Dates: start: 20141104, end: 20150108
  4. CRAVIT [Concomitant]
     Active Substance: LEVOFLOXACIN
     Indication: PROPHYLAXIS
     Dosage: 500 MG, UNK
     Route: 048
     Dates: end: 20150108
  5. ITORAT [Concomitant]
     Indication: PROPHYLAXIS
     Dosage: 200 MG, UNK
     Route: 048
     Dates: end: 20150108

REACTIONS (13)
  - Respiratory failure [Fatal]
  - Asthenia [Unknown]
  - Blood pressure decreased [Unknown]
  - Infection [Unknown]
  - Abdominal distension [Unknown]
  - General physical health deterioration [Unknown]
  - Hypophagia [Unknown]
  - Vomiting [Fatal]
  - Pneumonia aspiration [Fatal]
  - Myelofibrosis [Fatal]
  - Febrile neutropenia [Not Recovered/Not Resolved]
  - Ileus [Not Recovered/Not Resolved]
  - Cardio-respiratory arrest [Unknown]

NARRATIVE: CASE EVENT DATE: 20150102
